FAERS Safety Report 6602518-X (Version None)
Quarter: 2010Q1

REPORT INFORMATION
  Report Type: 
  Country: None (occurrence: None)
  Receive Date: 20100217
  Receipt Date: 20100202
  Transmission Date: 20100710
  Serious: Yes (Hospitalization, Other)
  Sender: FDA-Public Use
  Company Number: 1000011178

PATIENT
  Age: 72 Year
  Sex: Female

DRUGS (11)
  1. THYROID TAB [Suspect]
     Indication: HYPOTHYROIDISM
     Dosage: SEE IMAGE
     Route: 048
     Dates: start: 19850101, end: 20091001
  2. THYROID TAB [Suspect]
     Indication: HYPOTHYROIDISM
     Dosage: SEE IMAGE
     Route: 048
     Dates: start: 20100101, end: 20100101
  3. THYROID TAB [Suspect]
     Indication: HYPOTHYROIDISM
     Dosage: SEE IMAGE
     Route: 048
     Dates: start: 20091001, end: 20100128
  4. THYROID TAB [Suspect]
     Indication: HYPOTHYROIDISM
     Dosage: SEE IMAGE
     Route: 048
     Dates: start: 20100202
  5. NATURE-THROID (30 MILLIGRAM, TABLETS) [Suspect]
     Indication: HYPOTHYROIDISM
     Dosage: 60 MG (30 MG, 2 IN 1 D), ORAL
     Route: 048
     Dates: start: 20100129, end: 20100129
  6. COMPOUND THYROID PRODUCT (NOS) (65 MILLIGRAM, TABLETS) [Suspect]
     Indication: HYPOTHYROIDISM
     Dosage: 130 MG (65 MG, 2 IN 1 D), ORAL
     Route: 048
     Dates: start: 20100129, end: 20100129
  7. MULTI-VITAMINS [Concomitant]
  8. LISINOPRIL (12.5 MILLIGRAM, TABLETS) [Concomitant]
  9. XANAX [Concomitant]
  10. ASPIRIN [Concomitant]
  11. PREDNISONE [Concomitant]

REACTIONS (13)
  - ABDOMINAL PAIN UPPER [None]
  - BODY TEMPERATURE DECREASED [None]
  - BRAIN STEM HAEMORRHAGE [None]
  - CHEST PAIN [None]
  - DIARRHOEA [None]
  - DRUG INEFFECTIVE [None]
  - FEELING COLD [None]
  - INSOMNIA [None]
  - NAUSEA [None]
  - PAIN IN EXTREMITY [None]
  - SKIN DISORDER [None]
  - THYROXINE DECREASED [None]
  - TRI-IODOTHYRONINE FREE INCREASED [None]
